FAERS Safety Report 10448190 (Version 1)
Quarter: 2014Q3

REPORT INFORMATION
  Report Type: Spontaneous
  Country: CH (occurrence: CH)
  Receive Date: 20140911
  Receipt Date: 20140911
  Transmission Date: 20150326
  Serious: Yes (Other)
  Sender: FDA-Public Use
  Company Number: CH-GLAXOSMITHKLINE-B1031948A

PATIENT
  Age: 67 Year
  Sex: Female
  Weight: 84 kg

DRUGS (7)
  1. TRACLEER [Concomitant]
     Active Substance: BOSENTAN\BOSENTAN MONOHYDRATE
     Dosage: 125MG TWICE PER DAY
  2. ZOVIRAX [Suspect]
     Active Substance: ACYCLOVIR
     Indication: EPILEPSY
     Dosage: 750MG THREE TIMES PER DAY
     Route: 042
     Dates: end: 20140102
  3. PHENHYDAN [Suspect]
     Active Substance: PHENYTOIN
     Indication: HERPES SIMPLEX MENINGOENCEPHALITIS
     Dosage: 200MG THREE TIMES PER DAY
     Route: 065
  4. VIAGRA [Concomitant]
     Active Substance: SILDENAFIL CITRATE
     Dosage: 50MG TWICE PER DAY
  5. TOPAMAX [Concomitant]
     Active Substance: TOPIRAMATE
     Dosage: 100MG TWICE PER DAY
  6. KEPPRA [Concomitant]
     Active Substance: LEVETIRACETAM
     Dosage: 15ML TWICE PER DAY
  7. TOREM [Concomitant]
     Active Substance: TORSEMIDE
     Dosage: 10MG PER DAY

REACTIONS (2)
  - Anticonvulsant drug level decreased [Recovered/Resolved]
  - Labelled drug-food interaction medication error [Recovered/Resolved]

NARRATIVE: CASE EVENT DATE: 20131224
